FAERS Safety Report 8702665 (Version 2)
Quarter: 2012Q4

REPORT INFORMATION
  Report Type: 
  Country: US (occurrence: US)
  Receive Date: 20120803
  Receipt Date: 20120904
  Transmission Date: 20130627
  Serious: Yes (Hospitalization)
  Sender: FDA-Public Use
  Company Number: US-ALEXION-A201201428

PATIENT
  Sex: Female
  Weight: 75 kg

DRUGS (26)
  1. SOLIRIS 300MG [Suspect]
     Indication: HAEMOLYTIC URAEMIC SYNDROME
     Dosage: 900 mg, UNK
     Route: 042
     Dates: start: 20120131, end: 20120131
  2. SOLIRIS 300MG [Suspect]
     Dosage: 600 mg, UNK
     Route: 042
     Dates: start: 20020209, end: 20120223
  3. SOLIRIS 300MG [Suspect]
     Dosage: 900 mg, UNK
     Dates: start: 20120301
  4. ALBUTEROL SULFATE [Concomitant]
     Dosage: 90 ?g, 2 inhalations as directed
  5. AMBIEN [Concomitant]
     Indication: INSOMNIA
     Dosage: 5 mg, QHS prn
     Route: 048
  6. ASPIRIN [Concomitant]
     Dosage: 81 mg, qd
     Route: 048
  7. COLACE [Concomitant]
     Dosage: 100 mg, bid prn
     Route: 048
  8. COREG [Concomitant]
     Dosage: 6.25 mg, bid
     Route: 048
  9. CYMBALTA [Concomitant]
     Dosage: 60 mg, qd
     Route: 048
  10. DEPAKOTE [Concomitant]
     Dosage: 250 mg, tid
     Route: 048
  11. FERROUS SULFATE [Concomitant]
     Dosage: 325(65) mg, tid
     Route: 048
  12. FOLIC ACID [Concomitant]
     Dosage: 1 mg, qd
     Route: 048
  13. GABAPENTIN [Concomitant]
     Dosage: 100 mg, tid
     Route: 048
  14. HYDROXYZINE HYDROCHLORIDE [Concomitant]
     Dosage: 25 mg, prn
     Route: 048
  15. LASIX [Concomitant]
     Dosage: 20 mg, as directed
     Route: 048
  16. METOPROLOL SUCCINATE [Concomitant]
     Dosage: 50 mg, qd
     Route: 048
  17. MIRALAX [Concomitant]
     Dosage: UNK
  18. NEPHROCAPS [Concomitant]
     Dosage: 1 mg, qd
     Route: 048
  19. NORCO [Concomitant]
     Indication: PAIN
     Dosage: 10-325 mg, q4hrs prn
     Route: 048
  20. NORVASC [Concomitant]
     Dosage: 2.5 mg, qd
     Route: 048
  21. OMEPRAZOLE [Concomitant]
     Dosage: 20 mg, qd
     Route: 048
  22. PREMARIN [Concomitant]
     Dosage: 625 mg, qhs as directed
     Route: 048
  23. SEVELAMER CARBONATE [Concomitant]
     Dosage: 800 mg, tid
     Route: 048
  24. SODIUM BICARBONATE [Concomitant]
     Dosage: 325 mg, qd
     Route: 048
  25. XANAX [Concomitant]
     Dosage: 0.5 mg, tid
     Route: 048
  26. ZANAFLEX [Concomitant]
     Dosage: 4 mg, qd
     Route: 048

REACTIONS (2)
  - Hypotension [Unknown]
  - Pneumonia [Unknown]
